FAERS Safety Report 9820795 (Version 1)
Quarter: 2014Q1

REPORT INFORMATION
  Report Type: Spontaneous
  Country: US (occurrence: None)
  Receive Date: 20140114
  Receipt Date: 20140114
  Transmission Date: 20141002
  Serious: Yes (Hospitalization)
  Sender: FDA-Public Use
  Company Number: None

PATIENT
  Age: 69 Year
  Sex: Female
  Weight: 55.34 kg

DRUGS (1)
  1. RECLAST [Suspect]
     Indication: OSTEOPOROSIS
     Dosage: INTO A VEIN
     Dates: start: 20080710, end: 20121015

REACTIONS (4)
  - Femur fracture [None]
  - Fall [None]
  - Pain in extremity [None]
  - Muscular weakness [None]
